FAERS Safety Report 9008004 (Version 1)
Quarter: 2013Q1

REPORT INFORMATION
  Report Type: Spontaneous
  Country: IT (occurrence: IT)
  Receive Date: 20130110
  Receipt Date: 20130110
  Transmission Date: 20140127
  Serious: Yes (Hospitalization)
  Sender: FDA-Public Use
  Company Number: IT-AMGEN-ITASP2013001627

PATIENT
  Age: 58 Year
  Sex: Female

DRUGS (5)
  1. ENBREL [Suspect]
     Indication: PSORIASIS
     Dosage: 50 MG, MONTHLY
     Route: 058
     Dates: start: 20121210, end: 20121210
  2. KANRENOL [Concomitant]
     Dosage: 25 MG, 1 YEAR
  3. OMEPRAZEN                          /00661201/ [Concomitant]
     Dosage: 10 MG, 1 YEAR
  4. INDERAL [Concomitant]
     Dosage: 40 MG, 1 YEAR
  5. LASIX                              /00032601/ [Concomitant]
     Dosage: 25 MG, 1 YEAR

REACTIONS (1)
  - Jaundice [Unknown]
